FAERS Safety Report 18135557 (Version 1)
Quarter: 2020Q3

REPORT INFORMATION
  Report Type: Spontaneous
  Country: ES (occurrence: ES)
  Receive Date: 20200811
  Receipt Date: 20200811
  Transmission Date: 20201103
  Serious: Yes (Other)
  Sender: FDA-Public Use
  Company Number: ES-SHIRE-ES202025219

PATIENT

DRUGS (2)
  1. MESALAMINE. [Suspect]
     Active Substance: MESALAMINE
     Indication: CROHN^S DISEASE
     Dosage: 1 GRAM, 72 HOURS
     Route: 054
  2. PENTASA [Suspect]
     Active Substance: MESALAMINE
     Indication: CROHN^S DISEASE
     Dosage: 4 GRAM, 1X/DAY:QD
     Route: 048

REACTIONS (1)
  - Nephrolithiasis [Unknown]
